FAERS Safety Report 8601029-X (Version None)
Quarter: 2012Q3

REPORT INFORMATION
  Report Type: 
  Country: None (occurrence: None)
  Receive Date: 20120817
  Receipt Date: 20120807
  Transmission Date: 20120928
  Serious: Yes (Hospitalization)
  Sender: FDA-Public Use
  Company Number: JP-ASTELLAS-2012JP004839

PATIENT
  Sex: Male
  Weight: 53.15 kg

DRUGS (8)
  1. MYRBETRIQ [Suspect]
     Indication: POLLAKIURIA
     Dosage: 50 MG, UID/QD
     Route: 048
     Dates: start: 20120201, end: 20120301
  2. MICARDIS [Concomitant]
     Indication: HYPERTENSION
     Dosage: 40 MG, UID/QD
     Route: 048
  3. URSO                               /00465701/ [Concomitant]
     Indication: LIVER DISORDER
     Dosage: 200 MG, TID
     Route: 048
  4. AMARYL [Concomitant]
     Indication: DIABETES MELLITUS
     Dosage: 2 MG, UID/QD
     Route: 048
  5. VESICARE [Concomitant]
     Indication: POLLAKIURIA
     Dosage: 2.5 MG, UID/QD
     Route: 048
  6. FAMOTIDINE [Concomitant]
     Indication: GASTRITIS
     Dosage: 20 MG, UID/QD
     Route: 048
  7. RIZE                               /00624801/ [Concomitant]
     Indication: INSOMNIA
     Dosage: 5 MG, UID/QD
     Route: 048
  8. ATELEC [Concomitant]
     Indication: HYPERTENSION
     Dosage: 10 MG, UID/QD
     Route: 048

REACTIONS (3)
  - ASCITES [None]
  - HYPOPROTEINAEMIA [None]
  - OEDEMA [None]
